FAERS Safety Report 24277775 (Version 2)
Quarter: 2024Q4

REPORT INFORMATION
  Report Type: Report from Study
  Country: JP (occurrence: JP)
  Receive Date: 20240903
  Receipt Date: 20241001
  Transmission Date: 20250114
  Serious: Yes (Death)
  Sender: AKEBIA THERAPEUTICS
  Company Number: JP-MTPC-MTPC2022-0031987

PATIENT
  Age: 76 Year
  Sex: Male
  Weight: 56.1 kg

DRUGS (16)
  1. VADADUSTAT [Suspect]
     Active Substance: VADADUSTAT
     Indication: Nephrogenic anaemia
     Dosage: 300 MILLIGRAM, QD
     Route: 048
     Dates: start: 20220726, end: 20230529
  2. VADADUSTAT [Suspect]
     Active Substance: VADADUSTAT
     Dosage: 450 MILLIGRAM, QD
     Route: 048
     Dates: start: 20230530, end: 20240125
  3. OLMESARTAN MEDOXOMIL [Concomitant]
     Active Substance: OLMESARTAN MEDOXOMIL
     Indication: Illness
     Dosage: 10 MILLIGRAM, QD
     Route: 048
     Dates: start: 20221117, end: 20240109
  4. IRON SUCROSE [Concomitant]
     Active Substance: IRON SUCROSE
     Indication: Illness
     Dosage: UNK, PRN
     Route: 051
     Dates: start: 20221126, end: 20230114
  5. RENAGEL [Concomitant]
     Active Substance: SEVELAMER HYDROCHLORIDE
     Indication: Product used for unknown indication
     Dosage: 1500 MILLIGRAM, QD
     Route: 048
     Dates: end: 20240109
  6. NIFEDIPINE [Concomitant]
     Active Substance: NIFEDIPINE
     Indication: Product used for unknown indication
     Dosage: 20 MILLIGRAM, QD
     Route: 048
     Dates: end: 20240109
  7. ZINC [Concomitant]
     Active Substance: ZINC
     Indication: Illness
     Dosage: 50 MILLIGRAM, QD
     Route: 048
     Dates: end: 20220808
  8. ZINC [Concomitant]
     Active Substance: ZINC
     Dosage: 25 MILLIGRAM, QD
     Route: 048
     Dates: start: 20220809, end: 20240109
  9. LIMAPROST [Concomitant]
     Active Substance: LIMAPROST
     Indication: Illness
     Dosage: 15 MICROGRAM, QD
     Route: 048
     Dates: end: 20240109
  10. REBAMIPIDE [Concomitant]
     Active Substance: REBAMIPIDE
     Indication: Prophylaxis
     Dosage: 300 MILLIGRAM, QD
     Route: 048
     Dates: end: 20240109
  11. PREGABALIN [Concomitant]
     Active Substance: PREGABALIN
     Indication: Illness
     Dosage: 25 MILLIGRAM, QD
     Route: 048
     Dates: end: 20240109
  12. VONOPRAZAN FUMARATE [Concomitant]
     Active Substance: VONOPRAZAN FUMARATE
     Indication: Prophylaxis
     Dosage: 10 MILLIGRAM, QD
     Route: 048
     Dates: end: 20240109
  13. LAGNOS NF [Concomitant]
     Indication: Illness
     Dosage: 48 GRAM, QD
     Route: 048
     Dates: end: 20240109
  14. SHAKUYAKUKANZOTO [Concomitant]
     Active Substance: HERBALS
     Indication: Illness
     Dosage: UNK, PRN
     Route: 048
     Dates: end: 20230614
  15. ALFACALCIDOL [Concomitant]
     Active Substance: ALFACALCIDOL
     Indication: Illness
     Dosage: 0.25 MICROGRAM, QD
     Route: 048
     Dates: end: 20230711
  16. FUROSEMIDE [Concomitant]
     Active Substance: FUROSEMIDE
     Indication: Illness
     Dosage: 40 MILLIGRAM, QD
     Route: 048
     Dates: end: 20240109

REACTIONS (2)
  - Sudden cardiac death [Fatal]
  - C-reactive protein increased [Recovered/Resolved]

NARRATIVE: CASE EVENT DATE: 20220927
